FAERS Safety Report 8055064-3 (Version None)
Quarter: 2011Q4

REPORT INFORMATION
  Report Type: 
  Country: None (occurrence: None)
  Receive Date: 20111213
  Receipt Date: 20110823
  Transmission Date: 20120403
  Serious: No
  Sender: FDA-Public Use
  Company Number: 2011SP039885

PATIENT
  Age: 53 Year
  Sex: Female

DRUGS (5)
  1. BUSPAR [Concomitant]
  2. SAPHRIS [Suspect]
     Indication: BIPOLAR DISORDER
     Dates: start: 20110101
  3. KLONOPIN [Concomitant]
  4. SIMVASTATOM [Concomitant]
  5. DEPAKOTE [Concomitant]

REACTIONS (3)
  - BLOOD CHOLESTEROL INCREASED [None]
  - WEIGHT INCREASED [None]
  - BLOOD GLUCOSE INCREASED [None]
